FAERS Safety Report 9643014 (Version 1)
Quarter: 2013Q4

REPORT INFORMATION
  Report Type: Report from Study
  Country: FR (occurrence: FR)
  Receive Date: 20131024
  Receipt Date: 20131024
  Transmission Date: 20140711
  Serious: Yes (Other)
  Sender: FDA-Public Use
  Company Number: FR-INCYTE CORPORATION-2013IN002473

PATIENT
  Sex: 0

DRUGS (16)
  1. CINC424B2301 [Suspect]
     Indication: POLYCYTHAEMIA VERA
     Dosage: 20 MG, BID
     Route: 048
     Dates: start: 20130312, end: 20130318
  2. CINC424B2301 [Suspect]
     Dosage: 5 MG, BID
     Route: 048
     Dates: start: 20130325, end: 20130405
  3. CINC424B2301 [Suspect]
     Dosage: 5 MG, BID
     Dates: start: 20130413, end: 20130416
  4. CINC424B2301 [Suspect]
     Dosage: 5 MG, BID
     Route: 048
     Dates: start: 20130511, end: 20130528
  5. CINC424B2301 [Suspect]
     Dosage: 5 MG, QD
     Dates: start: 20130611, end: 20130708
  6. VITAMIN C [Concomitant]
  7. ALLOPURINOL [Concomitant]
  8. INSPRA [Concomitant]
  9. BRILIQUE [Concomitant]
  10. DUFFU-K [Concomitant]
  11. TARDYFERON [Concomitant]
  12. STILNOX [Concomitant]
  13. DOLIPRANE [Concomitant]
  14. TRIATEC [Concomitant]
  15. INEXIUM/ESOMEPRAZOLE MAGNESIUM [Concomitant]
  16. BISOPROLOL [Concomitant]

REACTIONS (2)
  - Personality change [Recovered/Resolved]
  - Myalgia [None]
